FAERS Safety Report 22960182 (Version 3)
Quarter: 2025Q3

REPORT INFORMATION
  Report Type: Spontaneous
  Country: US (occurrence: US)
  Receive Date: 20230920
  Receipt Date: 20250813
  Transmission Date: 20251020
  Serious: No
  Sender: AMGEN
  Company Number: US-AMGEN-USASP2023163953

PATIENT
  Age: 64 Year
  Sex: Male

DRUGS (1)
  1. NEULASTA [Suspect]
     Active Substance: PEGFILGRASTIM
     Indication: Prophylaxis
     Route: 065

REACTIONS (1)
  - Device use error [Unknown]

NARRATIVE: CASE EVENT DATE: 20230602
